FAERS Safety Report 8125211-3 (Version None)
Quarter: 2012Q1

REPORT INFORMATION
  Report Type: 
  Country: None (occurrence: None)
  Receive Date: 20120209
  Receipt Date: 20120128
  Transmission Date: 20120608
  Serious: Yes (Disabling)
  Sender: FDA-Public Use
  Company Number: US-PFIZER INC-2011154969

PATIENT
  Sex: Female
  Weight: 66.8 kg

DRUGS (9)
  1. SYNTHROID [Concomitant]
     Indication: HYPOTHYROIDISM
     Dosage: UNK
     Dates: start: 20110705
  2. DEXAMETHASONE [Concomitant]
     Indication: CONVULSION
     Dosage: UNK
     Dates: start: 20110705
  3. COMPAZINE [Concomitant]
     Indication: NAUSEA
     Dosage: UNK
     Dates: start: 20110705
  4. NORCO [Concomitant]
     Indication: PAIN
     Dosage: UNK
     Dates: start: 20110705
  5. AMBIEN [Concomitant]
     Indication: INSOMNIA
     Dosage: UNK
     Dates: start: 20110705
  6. ONDANSETRON HCL [Concomitant]
     Indication: NAUSEA
     Dosage: UNK
     Dates: start: 20110705
  7. KEPPRA [Concomitant]
     Indication: CONVULSION
     Dosage: UNK
     Dates: start: 20110307
  8. CRIZOTINIB [Suspect]
     Indication: NON-SMALL CELL LUNG CANCER
     Dosage: 250 MG, 2X/DAY
     Route: 048
     Dates: start: 20110614
  9. TENORMIN [Concomitant]
     Indication: HYPERTENSION
     Dosage: UNK
     Dates: start: 20110705

REACTIONS (1)
  - CONVULSION [None]
